FAERS Safety Report 13631916 (Version 1)
Quarter: 2017Q2

REPORT INFORMATION
  Report Type: Spontaneous
  Country: US (occurrence: US)
  Receive Date: 20170531
  Receipt Date: 20170531
  Transmission Date: 20170830
  Serious: No
  Sender: FDA-Public Use
  Company Number: US-ASTELLAS-1425675

PATIENT
  Age: 86 Year
  Sex: Female
  Weight: 52.21 kg

DRUGS (7)
  1. TARCEVA [Suspect]
     Active Substance: ERLOTINIB HYDROCHLORIDE
     Indication: NON-SMALL CELL LUNG CANCER
     Dosage: START DATE: 06/JUN/2014,
     Route: 048
     Dates: end: 20140709
  2. ENOXAPARIN [Concomitant]
     Active Substance: ENOXAPARIN
     Indication: ANTICOAGULANT THERAPY
     Route: 058
  3. SYNTHROID [Concomitant]
     Active Substance: LEVOTHYROXINE SODIUM
  4. FUROSEMIDE. [Concomitant]
     Active Substance: FUROSEMIDE
  5. FOLIC ACID. [Concomitant]
     Active Substance: FOLIC ACID
  6. WARFARIN [Concomitant]
     Active Substance: WARFARIN
  7. METOPROLOL TARTRATE. [Concomitant]
     Active Substance: METOPROLOL TARTRATE

REACTIONS (11)
  - Ear pain [Unknown]
  - Dysgeusia [Unknown]
  - Overdose [Unknown]
  - Mole excision [Recovering/Resolving]
  - Weight decreased [Unknown]
  - Erythema [Not Recovered/Not Resolved]
  - Dysphagia [Unknown]
  - Dry skin [Not Recovered/Not Resolved]
  - Sensation of foreign body [Recovered/Resolved]
  - Salivary hypersecretion [Unknown]
  - Pruritus [Not Recovered/Not Resolved]

NARRATIVE: CASE EVENT DATE: 2014
